FAERS Safety Report 10200966 (Version 1)
Quarter: 2014Q2

REPORT INFORMATION
  Report Type: Spontaneous
  Country: FR (occurrence: FR)
  Receive Date: 20140528
  Receipt Date: 20140528
  Transmission Date: 20141212
  Serious: Yes (Hospitalization)
  Sender: FDA-Public Use
  Company Number: PHHY2014FR063307

PATIENT
  Age: 64 Year
  Sex: Male

DRUGS (13)
  1. CERTICAN [Suspect]
     Dosage: 1.25 MG, BID
     Route: 048
     Dates: start: 200904
  2. MYFORTIC [Suspect]
     Dosage: 360 MG, BID
     Route: 048
     Dates: start: 200904
  3. TRIATEC [Suspect]
     Indication: NEPHROPATHY
     Dosage: 2.5 MG, QD
     Route: 048
     Dates: start: 201309, end: 20140325
  4. TRIATEC [Suspect]
     Indication: PROTEINURIA
  5. ADVAGRAF [Suspect]
     Dosage: 2 MG, QD
     Route: 048
     Dates: start: 200904
  6. SOLUPRED [Concomitant]
     Dosage: 5 MG, QD
     Route: 048
     Dates: start: 200904
  7. LASILIX//FUROSEMIDE [Concomitant]
     Dosage: 20 MG, QD
     Route: 048
  8. INEXIUM//ESOMEPRAZOLE MAGNESIUM [Concomitant]
     Dosage: 20 MG, QD
  9. ELISOR [Concomitant]
     Dosage: 20 MG, QD
     Route: 048
  10. CACIT D3 [Concomitant]
     Dosage: UNK UKN, UNK
  11. ACTONEL [Concomitant]
     Dosage: 300 MG, UNK
  12. AUGMENTIN [Concomitant]
     Indication: KAPOSI^S VARICELLIFORM ERUPTION
     Dosage: UNK UKN, UNK
  13. ZELITREX [Concomitant]
     Indication: KAPOSI^S VARICELLIFORM ERUPTION
     Dosage: UNK UKN, UNK

REACTIONS (1)
  - Angioedema [Recovered/Resolved]
